FAERS Safety Report 5743436-9 (Version None)
Quarter: 2008Q2

REPORT INFORMATION
  Report Type: 
  Country: None (occurrence: None)
  Receive Date: 20080519
  Receipt Date: 20080519
  Transmission Date: 20081010
  Serious: Yes (Death)
  Sender: FDA-Public Use
  Company Number: None

PATIENT
  Age: 86 Year
  Sex: Female
  Weight: 72.5755 kg

DRUGS (1)
  1. DIGITEK 250 [Suspect]
     Indication: HEART RATE IRREGULAR
     Dosage: 1 1 A DAY PO
     Route: 048
     Dates: start: 20061005, end: 20080430

REACTIONS (13)
  - ASTHENIA [None]
  - CONTUSION [None]
  - FATIGUE [None]
  - HAEMORRHAGIC DIATHESIS [None]
  - HEART RATE IRREGULAR [None]
  - INJURY [None]
  - MALAISE [None]
  - ORAL INTAKE REDUCED [None]
  - PAIN IN EXTREMITY [None]
  - RECTAL FISSURE [None]
  - RECTAL HAEMORRHAGE [None]
  - RENAL PAIN [None]
  - URINARY TRACT INFECTION [None]
